FAERS Safety Report 7797909 (Version 7)
Quarter: 2014Q3

REPORT INFORMATION
  Report Type: Report from Study
  Country: JP (occurrence: JP)
  Receive Date: 20110203
  Receipt Date: 20140909
  Transmission Date: 20150326
  Serious: Yes (Life-Threatening, Hospitalization)
  Sender: FDA-Public Use
  Company Number: JP-B.I. PHARMACEUTICALS,INC./RIDGEFIELD-2011-DE-00732GD

PATIENT
  Sex: Female
  Weight: 41 kg

DRUGS (14)
  1. NEUROVITAN /OCTOTIAMINE B2_B6_B12 COMBINED DRUG [Concomitant]
     Route: 065
  2. MUCOSTA [Concomitant]
     Active Substance: REBAMIPIDE
     Dosage: 200 MG
     Route: 065
  3. SOSEGON [Concomitant]
     Active Substance: PENTAZOCINE
     Route: 065
     Dates: start: 20080731, end: 20080731
  4. MAGNESIUM OXIDE. [Concomitant]
     Active Substance: MAGNESIUM OXIDE
     Route: 065
  5. PYDOXAL [Concomitant]
     Active Substance: PYRIDOXAL
     Dosage: 8DF
     Route: 065
  6. MOBIC [Suspect]
     Active Substance: MELOXICAM
     Indication: RHEUMATOID ARTHRITIS
     Dosage: 10 MG
     Route: 048
     Dates: start: 200611
  7. RIMATIL [Concomitant]
     Active Substance: BUCILLAMINE
     Indication: RHEUMATOID ARTHRITIS
     Dosage: 4DF
     Route: 065
  8. NEUROVITAN /OCTOTIAMINE B2_B6_B12 COMBINED DRUG [Concomitant]
     Route: 065
  9. NORVASC [Concomitant]
     Active Substance: AMLODIPINE BESYLATE
     Indication: HYPERTENSION
     Dosage: 5 MG
     Route: 065
  10. CALONAL [Concomitant]
     Active Substance: ACETAMINOPHEN
     Route: 065
  11. NEORAL [Concomitant]
     Active Substance: CYCLOSPORINE
     Indication: MYELODYSPLASTIC SYNDROME
     Dosage: 100 MG
     Route: 065
  12. FOLIAMIN [Concomitant]
     Active Substance: FOLIC ACID
     Dosage: 5 MG
     Route: 065
  13. PURSENNID [Concomitant]
     Active Substance: SENNOSIDES A AND B CALCIUM
     Route: 065
  14. DORMICUM [Concomitant]
     Active Substance: MIDAZOLAM\MIDAZOLAM HYDROCHLORIDE
     Route: 065
     Dates: start: 20080731

REACTIONS (5)
  - Intestinal diaphragm disease [Unknown]
  - Small intestine ulcer [Unknown]
  - Haematochezia [Unknown]
  - Diverticulum [Unknown]
  - Ileal stenosis [Not Recovered/Not Resolved]

NARRATIVE: CASE EVENT DATE: 2007
